FAERS Safety Report 8620108-4 (Version None)
Quarter: 2012Q3

REPORT INFORMATION
  Report Type: 
  Country: None (occurrence: None)
  Receive Date: 20120824
  Receipt Date: 20120815
  Transmission Date: 20120928
  Serious: Yes (Other)
  Sender: FDA-Public Use
  Company Number: US-JNJFOC-20120809317

PATIENT
  Sex: Female
  Weight: 126.1 kg

DRUGS (5)
  1. UNKNOWN MEDICATION [Concomitant]
     Indication: BLOOD PRESSURE
     Dosage: ONCE AT NIGHT
     Route: 048
  2. MONTELUKAST SODIUM [Concomitant]
     Indication: MULTIPLE ALLERGIES
     Dosage: ONCE AT NIGHT
     Route: 048
  3. ZETIA [Concomitant]
     Indication: BLOOD CHOLESTEROL
     Dosage: ONCE AT NIGHT
     Route: 048
  4. REMICADE [Suspect]
     Indication: RHEUMATOID ARTHRITIS
     Dosage: 10 VIALS
     Route: 042
     Dates: start: 20110101
  5. ALL OTHER THERAPEUTIC PRODUCTS [Concomitant]
     Indication: HYPERTHYROIDISM
     Route: 048

REACTIONS (2)
  - ABDOMINAL PAIN [None]
  - VERTIGO [None]
